FAERS Safety Report 14412340 (Version 1)
Quarter: 2018Q1

REPORT INFORMATION
  Report Type: Report from Study
  Country: ZA (occurrence: ZA)
  Receive Date: 20180119
  Receipt Date: 20180119
  Transmission Date: 20180509
  Serious: Yes (Hospitalization)
  Sender: FDA-Public Use
  Company Number: ZA-MARINA BIOTECH, INC.-2017MARINA000493

PATIENT

DRUGS (6)
  1. ASTHAVENT                          /00139501/ [Concomitant]
     Indication: ASTHMA
     Dosage: 100 ?G, QD
     Dates: start: 20161104
  2. COVERAM [Suspect]
     Active Substance: AMLODIPINE\PERINDOPRIL
     Indication: HYPERTENSION
     Dosage: 1 (10MG/10MG) TABLET QD
     Route: 048
     Dates: start: 20161104
  3. COLCHICINE. [Concomitant]
     Active Substance: COLCHICINE
     Indication: GOUT
     Dosage: 1 MG, QD
     Dates: start: 20161104
  4. PURICOS [Concomitant]
     Active Substance: ALLOPURINOL
     Indication: GOUT
     Dosage: 300 MG, QD
     Dates: start: 20161104
  5. CELEBREX [Concomitant]
     Active Substance: CELECOXIB
     Indication: PAIN
     Dosage: 200 MG, QD
     Dates: start: 20161104
  6. ULTRACET [Concomitant]
     Active Substance: ACETAMINOPHEN\TRAMADOL HYDROCHLORIDE
     Indication: PAIN
     Dosage: UNK
     Dates: start: 20161104

REACTIONS (4)
  - Cerebrovascular accident [Recovered/Resolved]
  - Hypoaesthesia oral [Unknown]
  - Swelling face [Unknown]
  - Carotid artery occlusion [Unknown]

NARRATIVE: CASE EVENT DATE: 20170318
